FAERS Safety Report 24988056 (Version 2)
Quarter: 2025Q1

REPORT INFORMATION
  Report Type: Spontaneous
  Country: US (occurrence: US)
  Receive Date: 20250220
  Receipt Date: 20250227
  Transmission Date: 20250408
  Serious: No
  Sender: AMGEN
  Company Number: US-AMGEN-USASP2025029653

PATIENT
  Age: 59 Year
  Sex: Female
  Weight: 108.45 kg

DRUGS (1)
  1. NEULASTA [Suspect]
     Active Substance: PEGFILGRASTIM
     Indication: Breast cancer
     Route: 065

REACTIONS (3)
  - Device placement issue [Unknown]
  - Unintentional medical device removal [Unknown]
  - Device adhesion issue [Unknown]

NARRATIVE: CASE EVENT DATE: 20250210
